FAERS Safety Report 6468460-2 (Version None)
Quarter: 2009Q4

REPORT INFORMATION
  Report Type: 
  Country: None (occurrence: None)
  Receive Date: 20091130
  Receipt Date: 20091113
  Transmission Date: 20100525
  Serious: Yes (Life-Threatening, Hospitalization)
  Sender: FDA-Public Use
  Company Number: 1-20728634

PATIENT
  Age: 16 Day
  Sex: Male
  Weight: 4.2185 kg

DRUGS (1)
  1. LAMOTRIGINE [Suspect]
     Indication: CONVULSION
     Dosage: UNK, UNK, TRANSMAMMARY
     Route: 063

REACTIONS (11)
  - CYANOSIS NEONATAL [None]
  - DEPRESSED LEVEL OF CONSCIOUSNESS [None]
  - DRUG EXPOSURE VIA BREAST MILK [None]
  - GENERAL PHYSICAL HEALTH DETERIORATION [None]
  - INFANTILE APNOEIC ATTACK [None]
  - MATERNAL DRUGS AFFECTING FOETUS [None]
  - PULMONARY VALVE STENOSIS [None]
  - RESPIRATORY DISORDER NEONATAL [None]
  - RESPIRATORY RATE INCREASED [None]
  - RESTLESSNESS [None]
  - SINUS TACHYCARDIA [None]
